FAERS Safety Report 25578666 (Version 1)
Quarter: 2025Q3

REPORT INFORMATION
  Report Type: Spontaneous
  Country: JP (occurrence: JP)
  Receive Date: 20250718
  Receipt Date: 20250718
  Transmission Date: 20251020
  Serious: Yes (Hospitalization, Other)
  Sender: ELI LILLY AND COMPANY
  Company Number: JP-ELI_LILLY_AND_COMPANY-JP202301013820

PATIENT
  Age: 58 Year
  Sex: Female

DRUGS (6)
  1. CYRAMZA [Suspect]
     Active Substance: RAMUCIRUMAB
     Indication: Colon cancer stage IV
     Route: 041
     Dates: start: 20221214, end: 20230113
  2. BEVACIZUMAB [Suspect]
     Active Substance: BEVACIZUMAB
     Indication: Colon cancer stage IV
     Route: 065
     Dates: start: 202207, end: 202209
  3. IRINOTECAN [Concomitant]
     Active Substance: IRINOTECAN
     Indication: Colon cancer stage IV
     Dates: start: 202212
  4. LEVOLEUCOVORIN CALCIUM [Concomitant]
     Active Substance: LEVOLEUCOVORIN CALCIUM
     Indication: Colon cancer stage IV
     Dates: start: 202212
  5. FLUOROURACIL [Concomitant]
     Active Substance: FLUOROURACIL
     Indication: Colon cancer stage IV
     Dates: start: 202212
  6. SODIUM FERROUS CITRATE [Concomitant]
     Active Substance: SODIUM FERROUS CITRATE
     Indication: Iron deficiency anaemia
     Route: 048

REACTIONS (9)
  - Microangiopathic haemolytic anaemia [Recovered/Resolved]
  - Microangiopathic haemolytic anaemia [Unknown]
  - Vena cava thrombosis [Unknown]
  - Pulmonary artery thrombosis [Unknown]
  - Thrombotic microangiopathy [Recovered/Resolved]
  - Nephrotic syndrome [Recovering/Resolving]
  - Hyperplasia [Unknown]
  - Glomerulonephritis rapidly progressive [Unknown]
  - Peripheral swelling [Unknown]

NARRATIVE: CASE EVENT DATE: 20221228
